FAERS Safety Report 10301841 (Version 5)
Quarter: 2014Q4

REPORT INFORMATION
  Report Type: Spontaneous
  Country: DE (occurrence: None)
  Receive Date: 20140709
  Receipt Date: 20141014
  Transmission Date: 20150528
  Serious: Yes (Hospitalization)
  Sender: FDA-Public Use
  Company Number: 2014MPI00777

PATIENT
  Age: 30 Year
  Sex: Female

DRUGS (10)
  1. AVELOX [Concomitant]
     Active Substance: MOXIFLOXACIN HYDROCHLORIDE
  2. TOREM (TORASEMIDE) [Concomitant]
     Active Substance: TORSEMIDE
  3. EUSAPRIM (SULFAMETHOXAZOLE, TRIMETHOPRIM) [Concomitant]
  4. CLEXANE (ENOXAPARIN SODIUM) [Concomitant]
     Active Substance: ENOXAPARIN SODIUM
  5. BRENTUXIMAB VEDOTIN [Suspect]
     Active Substance: BRENTUXIMAB VEDOTIN
     Indication: HODGKIN^S DISEASE
     Dates: start: 20140610, end: 20140610
  6. NEUPOGEN (FILGRASTIM) [Concomitant]
     Active Substance: FILGRASTIM
  7. STUDY DRUG [Suspect]
     Active Substance: INVESTIGATIONAL PRODUCT
     Indication: HODGKIN^S DISEASE
     Dates: start: 20140611, end: 20140614
  8. ACIC (ACICLOVIR) [Concomitant]
  9. PANTOZOL (ERYTHROMYCIN ETHYLSUCCINATE, SULFAFURAZOLE) [Concomitant]
  10. ZOLADEX (GOSERELIN ACETATE) [Concomitant]

REACTIONS (8)
  - Blood potassium decreased [None]
  - Febrile bone marrow aplasia [None]
  - Seroma [None]
  - Herpes virus infection [None]
  - Cardiac murmur [None]
  - Iron deficiency anaemia [None]
  - Swelling [None]
  - Blood glucose increased [None]

NARRATIVE: CASE EVENT DATE: 20140623
